FAERS Safety Report 7421588-2 (Version None)
Quarter: 2011Q2

REPORT INFORMATION
  Report Type: 
  Country: None (occurrence: None)
  Receive Date: 20110418
  Receipt Date: 20110413
  Transmission Date: 20111010
  Serious: Yes (Other)
  Sender: FDA-Public Use
  Company Number: CHPA2011GB04774

PATIENT
  Sex: Female

DRUGS (9)
  1. VENTOLIN [Concomitant]
     Dosage: UNK, UNK
     Dates: start: 20060101
  2. CALCIUM [Concomitant]
     Dosage: UNK, UNK
     Route: 065
  3. VALTREX [Concomitant]
     Indication: ORAL HERPES
     Dosage: WHEN REQUIRED
     Route: 065
     Dates: start: 19930101
  4. GARLIC [Concomitant]
     Dosage: UNK, UNK
     Route: 065
  5. NICOTINELL GUM [Suspect]
     Dosage: 24 MG, QD
     Route: 002
  6. ENALAPRIL MALEATE [Concomitant]
     Indication: BLOOD PRESSURE
     Dosage: 5 MG, QD
     Route: 048
     Dates: start: 20061101
  7. NICOTINELL GUM [Suspect]
     Indication: SMOKING CESSATION THERAPY
     Dosage: 48 MG, QD
     Route: 002
     Dates: start: 20070101
  8. ASCORBIC ACID [Concomitant]
     Dosage: UNK, UNK
     Route: 065
  9. COD-LIVER OIL [Concomitant]
     Dosage: UNK, UNK
     Route: 065

REACTIONS (6)
  - HYPERHIDROSIS [None]
  - WRONG TECHNIQUE IN DRUG USAGE PROCESS [None]
  - NICOTINE DEPENDENCE [None]
  - DEPRESSED MOOD [None]
  - DRUG DEPENDENCE [None]
  - INCORRECT DRUG ADMINISTRATION DURATION [None]
